FAERS Safety Report 9338105 (Version 2)
Quarter: 2013Q2

REPORT INFORMATION
  Report Type: Spontaneous
  Country: JP (occurrence: JP)
  Receive Date: 20130610
  Receipt Date: 20130625
  Transmission Date: 20140414
  Serious: Yes (Death, Other)
  Sender: FDA-Public Use
  Company Number: JP-ROCHE-1228582

PATIENT
  Age: 51 Year
  Sex: Female
  Weight: 52 kg

DRUGS (6)
  1. AVASTIN [Suspect]
     Indication: BREAST CANCER METASTATIC
     Route: 041
     Dates: start: 20130121, end: 20130501
  2. PACLITAXEL [Concomitant]
     Indication: BREAST CANCER METASTATIC
     Route: 041
     Dates: start: 20130121, end: 20130501
  3. DEXART [Concomitant]
     Dosage: DOSAGE IS UNCERTAIN.
     Route: 042
  4. RESTAMIN [Concomitant]
     Indication: ALLERGY PROPHYLAXIS
     Route: 048
     Dates: start: 20130121
  5. GRANISETRON [Concomitant]
     Indication: PROPHYLAXIS
     Route: 041
     Dates: start: 20130121
  6. ZANTAC [Concomitant]
     Indication: PROPHYLAXIS
     Dosage: DOSAGE IS UNCERTAIN.
     Route: 041
     Dates: start: 20130121

REACTIONS (4)
  - Haemoptysis [Fatal]
  - Asphyxia [Fatal]
  - Bone marrow failure [Unknown]
  - Anaemia [Unknown]
